FAERS Safety Report 5615231-2 (Version None)
Quarter: 2008Q1

REPORT INFORMATION
  Report Type: 
  Country: None (occurrence: None)
  Receive Date: 20080205
  Receipt Date: 20080205
  Transmission Date: 20080703
  Serious: No
  Sender: FDA-Public Use
  Company Number: None

PATIENT
  Sex: Female
  Weight: 52.6173 kg

DRUGS (1)
  1. NASONEX [Suspect]
     Indication: MULTIPLE ALLERGIES
     Dosage: SPRAY 1 TIME/DAY NASAL
     Route: 045
     Dates: start: 20050110, end: 20050405

REACTIONS (1)
  - NASAL SEPTUM PERFORATION [None]
